FAERS Safety Report 15867967 (Version 2)
Quarter: 2019Q1

REPORT INFORMATION
  Report Type: Spontaneous
  Country: VE (occurrence: VE)
  Receive Date: 20190125
  Receipt Date: 20190218
  Transmission Date: 20190417
  Serious: Yes (Other)
  Sender: FDA-Public Use
  Company Number: PHHY2019VE011314

PATIENT
  Age: 51 Year
  Sex: Female

DRUGS (1)
  1. GLIVEC [Suspect]
     Active Substance: IMATINIB MESYLATE
     Indication: CHRONIC MYELOID LEUKAEMIA
     Dosage: 4 DF, QD (4 TABLETS OF 100 MG)
     Route: 048
     Dates: start: 20181008

REACTIONS (3)
  - Face oedema [Unknown]
  - Tooth abscess [Unknown]
  - Pain [Unknown]

NARRATIVE: CASE EVENT DATE: 20190106
